FAERS Safety Report 10072939 (Version 2)
Quarter: 2014Q2

REPORT INFORMATION
  Report Type: Spontaneous
  Country: JP (occurrence: JP)
  Receive Date: 20140411
  Receipt Date: 20140424
  Transmission Date: 20141212
  Serious: Yes (Death)
  Sender: FDA-Public Use
  Company Number: JP-BAXTER-2014BAX017374

PATIENT
  Sex: Male

DRUGS (1)
  1. DIANEAL-N PD-2 1.5 [Suspect]
     Indication: RENAL FAILURE CHRONIC
     Route: 033
     Dates: end: 20140330

REACTIONS (2)
  - Asphyxia [Fatal]
  - Aspiration [Fatal]
